FAERS Safety Report 13861431 (Version 1)
Quarter: 2017Q3

REPORT INFORMATION
  Report Type: Spontaneous
  Country: US (occurrence: US)
  Receive Date: 20170811
  Receipt Date: 20170811
  Transmission Date: 20171127
  Serious: Yes (Other)
  Sender: FDA-Public Use
  Company Number: US-ELI_LILLY_AND_COMPANY-US201708002213

PATIENT
  Age: 50 Year
  Sex: Male

DRUGS (7)
  1. ATIVAN [Concomitant]
     Active Substance: LORAZEPAM
     Dosage: UNK, UNKNOWN
     Route: 065
  2. DOXORUBICIN [Concomitant]
     Active Substance: DOXORUBICIN
     Indication: MYXOID LIPOSARCOMA
     Dosage: UNK, UNKNOWN
     Route: 065
  3. TEMOVATE [Concomitant]
     Active Substance: CLOBETASOL PROPIONATE
     Dosage: UNK, UNKNOWN
     Route: 065
  4. MEPRON                             /00049601/ [Concomitant]
     Active Substance: METHYLPREDNISOLONE
     Dosage: UNK, UNKNOWN
     Route: 065
  5. CLARITIN [Concomitant]
     Active Substance: LORATADINE
     Dosage: UNK, UNKNOWN
     Route: 065
  6. ZOFRAN [Concomitant]
     Active Substance: ONDANSETRON HYDROCHLORIDE
     Dosage: UNK, UNKNOWN
     Route: 065
  7. LARTRUVO [Suspect]
     Active Substance: OLARATUMAB
     Indication: MYXOID LIPOSARCOMA
     Dosage: 1470 MG, CYCLICAL
     Route: 042
     Dates: start: 20170308

REACTIONS (3)
  - Inappropriate schedule of drug administration [Unknown]
  - Pneumocystis jirovecii infection [Unknown]
  - Off label use [Unknown]

NARRATIVE: CASE EVENT DATE: 20170308
